FAERS Safety Report 24700581 (Version 1)
Quarter: 2024Q4

REPORT INFORMATION
  Report Type: Spontaneous
  Country: US (occurrence: US)
  Receive Date: 20241205
  Receipt Date: 20241205
  Transmission Date: 20250115
  Serious: Yes (Other)
  Sender: MYLAN
  Company Number: US-MYLANLABS-2024M1107092

PATIENT
  Age: 50 Year
  Sex: Male

DRUGS (2)
  1. PREDNISONE [Suspect]
     Active Substance: PREDNISONE
     Indication: Peripheral spondyloarthritis
     Dosage: UNK, FOLLOWING PREDNISONE TAPERING, THE PATIENT DEVELOPED PERIPHERAL SPONDYLOARTHRITIS REBOUND
     Route: 065
  2. METHOTREXATE [Suspect]
     Active Substance: METHOTREXATE
     Indication: Peripheral spondyloarthritis
     Dosage: UNK
     Route: 065

REACTIONS (3)
  - Peripheral spondyloarthritis [Recovered/Resolved]
  - Rebound effect [Recovered/Resolved]
  - Therapy non-responder [Unknown]
